FAERS Safety Report 8720303 (Version 3)
Quarter: 2013Q1

REPORT INFORMATION
  Report Type: Spontaneous
  Country: JP (occurrence: JP)
  Receive Date: 20120813
  Receipt Date: 20130201
  Transmission Date: 20140127
  Serious: Yes (Death, Hospitalization)
  Sender: FDA-Public Use
  Company Number: JP-B.I. PHARMACEUTICALS,INC./RIDGEFIELD-2012-BP-17909NB

PATIENT
  Age: 68 Year
  Sex: Male
  Weight: 56 kg

DRUGS (11)
  1. PRAZAXA [Suspect]
     Indication: ATRIAL FIBRILLATION
     Dosage: 220 MG
     Route: 048
     Dates: start: 20120312, end: 20120314
  2. PREDNISOLONE [Concomitant]
     Route: 048
  3. NEORAL [Concomitant]
     Route: 048
  4. FUNGUARD [Concomitant]
     Indication: BRONCHOPULMONARY ASPERGILLOSIS
     Dosage: 300 MG
     Route: 042
     Dates: start: 20120215, end: 20120320
  5. TAKEPRON [Concomitant]
     Route: 048
  6. BONALON 5MG [Concomitant]
     Route: 048
  7. BAKTAR [Concomitant]
     Route: 048
  8. GASTER D [Concomitant]
     Dosage: 10 NR
     Route: 048
     Dates: start: 20120215, end: 20120314
  9. BAYASPIRIN [Concomitant]
     Indication: ANGINA PECTORIS
     Dosage: 100 NR
     Route: 048
     Dates: start: 20120215, end: 20120314
  10. PANALDINE [Concomitant]
     Indication: ANGINA PECTORIS
     Dosage: 100 NR
     Route: 048
     Dates: start: 20120215, end: 20120314
  11. SIGMART [Concomitant]
     Indication: ANGINA PECTORIS
     Dosage: 5 NR
     Route: 048
     Dates: start: 20120215, end: 20120314

REACTIONS (2)
  - Pulmonary alveolar haemorrhage [Fatal]
  - Haemoptysis [Fatal]
